FAERS Safety Report 6268544-8 (Version None)
Quarter: 2009Q3

REPORT INFORMATION
  Report Type: 
  Country: None (occurrence: None)
  Receive Date: 20090713
  Receipt Date: 20090713
  Transmission Date: 20100115
  Serious: No
  Sender: FDA-Public Use
  Company Number: None

PATIENT
  Age: 58 Year
  Sex: Female
  Weight: 58.9676 kg

DRUGS (1)
  1. CYMBALTA [Suspect]
     Indication: ANXIETY
     Dosage: 60 MG 2BID PO
     Route: 048

REACTIONS (25)
  - ABNORMAL DREAMS [None]
  - AGEUSIA [None]
  - ANXIETY [None]
  - BACK PAIN [None]
  - DECREASED APPETITE [None]
  - DIZZINESS [None]
  - EMOTIONAL DISORDER [None]
  - EYE IRRITATION [None]
  - FATIGUE [None]
  - GAIT DISTURBANCE [None]
  - HEAD DISCOMFORT [None]
  - HYPOAESTHESIA [None]
  - MIOSIS [None]
  - MUSCLE SPASMS [None]
  - MUSCULAR WEAKNESS [None]
  - MYALGIA [None]
  - NAUSEA [None]
  - NECK PAIN [None]
  - NIGHT SWEATS [None]
  - PAIN [None]
  - PALPITATIONS [None]
  - TINNITUS [None]
  - TONGUE ULCERATION [None]
  - VISUAL IMPAIRMENT [None]
  - WITHDRAWAL SYNDROME [None]
